FAERS Safety Report 6865032-2 (Version None)
Quarter: 2010Q3

REPORT INFORMATION
  Report Type: 
  Country: None (occurrence: None)
  Receive Date: 20100721
  Receipt Date: 20080409
  Transmission Date: 20110219
  Serious: No
  Sender: FDA-Public Use
  Company Number: US-PFIZER INC-2008032656

PATIENT
  Sex: Female
  Weight: 83.9 kg

DRUGS (12)
  1. CHANTIX [Suspect]
     Indication: SMOKING CESSATION THERAPY
     Dates: start: 20080313, end: 20080401
  2. CYMBALTA [Concomitant]
     Indication: NERVOUSNESS
  3. DARVOCET [Concomitant]
     Indication: PAIN
  4. SOMA [Concomitant]
  5. MONTELUKAST SODIUM [Concomitant]
  6. KLONOPIN [Concomitant]
  7. XANAX [Concomitant]
  8. NAPROXEN [Concomitant]
  9. NEXIUM [Concomitant]
  10. LASIX [Concomitant]
  11. ADVAIR DISKUS 100/50 [Concomitant]
  12. ALL OTHER THERAPEUTIC PRODUCTS [Concomitant]

REACTIONS (1)
  - CHEST DISCOMFORT [None]
